FAERS Safety Report 23959220 (Version 1)
Quarter: 2024Q2

REPORT INFORMATION
  Report Type: Spontaneous
  Country: DE (occurrence: DE)
  Receive Date: 20240611
  Receipt Date: 20240611
  Transmission Date: 20240715
  Serious: Yes (Death, Life-Threatening, Hospitalization, Other)
  Sender: FDA-Public Use
  Company Number: None

PATIENT
  Age: 80 Year
  Sex: Male
  Weight: 100 kg

DRUGS (1)
  1. ELIQUIS [Suspect]
     Active Substance: APIXABAN
     Indication: Atrial fibrillation
     Route: 048
     Dates: start: 20200629, end: 20240430

REACTIONS (9)
  - Muscular weakness [Unknown]
  - Pneumonia aspiration [Fatal]
  - Cerebrovascular accident [Fatal]
  - General physical health deterioration [Unknown]
  - Subarachnoid haemorrhage [Fatal]
  - Delirium [Fatal]
  - Facial paresis [Unknown]
  - Mobility decreased [Unknown]
  - Off label use [Unknown]

NARRATIVE: CASE EVENT DATE: 20240401
